FAERS Safety Report 7289694-3 (Version None)
Quarter: 2011Q1

REPORT INFORMATION
  Report Type: 
  Country: None (occurrence: None)
  Receive Date: 20110214
  Receipt Date: 20110131
  Transmission Date: 20110831
  Serious: No
  Sender: FDA-Public Use
  Company Number: US-BIOGENIDEC-2010BI020747

PATIENT
  Age: 42 Year
  Sex: Male

DRUGS (1)
  1. TYSABRI [Suspect]
     Indication: MULTIPLE SCLEROSIS
     Route: 042
     Dates: start: 20100412

REACTIONS (8)
  - PAIN IN EXTREMITY [None]
  - BACK PAIN [None]
  - MUSCULOSKELETAL STIFFNESS [None]
  - LOSS OF CONTROL OF LEGS [None]
  - OCULAR HYPERAEMIA [None]
  - MOBILITY DECREASED [None]
  - FLUSHING [None]
  - DRUG EFFECT DECREASED [None]
